FAERS Safety Report 9642464 (Version 2)
Quarter: 2013Q4

REPORT INFORMATION
  Report Type: Spontaneous
  Country: BR (occurrence: BR)
  Receive Date: 20131024
  Receipt Date: 20131209
  Transmission Date: 20140711
  Serious: Yes (Hospitalization)
  Sender: FDA-Public Use
  Company Number: BR-BRISTOL-MYERS SQUIBB COMPANY-19583335

PATIENT
  Age: 72 Year
  Sex: Female

DRUGS (2)
  1. HYDREA CAPS 500 MG [Suspect]
     Indication: THROMBOCYTOSIS
     Dosage: 2 CAPS, ON TUE AND THUR: 2 CAPS AND OHER DAYS: 1 CAP.
     Route: 048
     Dates: start: 2012
  2. AAS [Concomitant]

REACTIONS (1)
  - Myocardial infarction [Recovered/Resolved]
